FAERS Safety Report 4456930-8 (Version None)
Quarter: 2004Q3

REPORT INFORMATION
  Report Type: 
  Country: None (occurrence: None)
  Receive Date: 20040923
  Receipt Date: 20040914
  Transmission Date: 20050211
  Serious: Yes (Hospitalization)
  Sender: FDA-Public Use
  Company Number: JP-MERCK-0409USA01635

PATIENT
  Age: 58 Year
  Sex: Male

DRUGS (12)
  1. LIPLE [Concomitant]
     Route: 042
     Dates: end: 20040820
  2. RISUMIC [Concomitant]
     Route: 048
     Dates: end: 20040820
  3. ROCALTROL [Concomitant]
     Route: 042
     Dates: end: 20040820
  4. CALTAN [Concomitant]
     Route: 048
     Dates: end: 20040820
  5. ALESION [Concomitant]
     Route: 048
     Dates: end: 20040820
  6. PEPCID RPD [Suspect]
     Route: 048
     Dates: end: 20040820
  7. ISOSORBIDE MONONITRATE [Concomitant]
     Route: 048
     Dates: end: 20040820
  8. GANATON [Concomitant]
     Route: 048
     Dates: end: 20040820
  9. ALDOMET [Concomitant]
     Route: 048
     Dates: end: 20040820
  10. ADALAT [Concomitant]
     Route: 048
     Dates: end: 20040820
  11. ALOSENN [Concomitant]
     Route: 048
     Dates: end: 20040820
  12. SELBEX [Concomitant]
     Route: 048
     Dates: end: 20040820

REACTIONS (3)
  - COGNITIVE DISORDER [None]
  - DEPRESSED LEVEL OF CONSCIOUSNESS [None]
  - HYPERTENSION [None]
